FAERS Safety Report 23664292 (Version 1)
Quarter: 2024Q1

REPORT INFORMATION
  Report Type: Spontaneous
  Country: US (occurrence: US)
  Receive Date: 20240322
  Receipt Date: 20240322
  Transmission Date: 20240410
  Serious: No
  Sender: FDA-Public Use
  Company Number: US-Covis Pharma GmbH-2024COV00276

PATIENT
  Sex: Female

DRUGS (14)
  1. RILUZOLE [Suspect]
     Active Substance: RILUZOLE
     Route: 048
     Dates: start: 2023
  2. RADICAVA ORS [Suspect]
     Active Substance: EDARAVONE
     Indication: Amyotrophic lateral sclerosis
     Dosage: QD FOR 10 DAYS OUT OF 14 DAYS, FOLLOWED BY 14-DAY DRUG FREE PERIODS
     Route: 048
     Dates: start: 20231104
  3. RELYVRIO [Suspect]
     Active Substance: SODIUM PHENYLBUTYRATE\TAURURSODIOL
  4. ZINC [Concomitant]
     Active Substance: PYRITHIONE ZINC\ZINC\ZINC CHLORIDE
  5. BIOTIN [Concomitant]
     Active Substance: BIOTIN
  6. VITAMIN C [Concomitant]
     Active Substance: ASCORBIC ACID
  7. VITAMIN D2 [Concomitant]
     Active Substance: ERGOCALCIFEROL
  8. BACLOFEN [Concomitant]
     Active Substance: BACLOFEN
  9. OMEPRAZOLE [Concomitant]
     Active Substance: OMEPRAZOLE
  10. RADICAVA [Concomitant]
     Active Substance: EDARAVONE
  11. IBUPROFEN [Concomitant]
     Active Substance: IBUPROFEN
  12. TYLENOL [Concomitant]
     Active Substance: ACETAMINOPHEN
  13. CRANBERRY [Concomitant]
     Active Substance: CRANBERRY
  14. ESTRADIOL [Concomitant]
     Active Substance: ESTRADIOL

REACTIONS (4)
  - Muscular weakness [Not Recovered/Not Resolved]
  - Alopecia [Unknown]
  - Dyspepsia [Unknown]
  - Intentional product use issue [Unknown]

NARRATIVE: CASE EVENT DATE: 20230101
